FAERS Safety Report 13163340 (Version 1)
Quarter: 2017Q1

REPORT INFORMATION
  Report Type: Spontaneous
  Country: US (occurrence: US)
  Receive Date: 20170125
  Receipt Date: 20170125
  Transmission Date: 20170428
  Serious: Yes (Life-Threatening, Hospitalization, Disabling, Other)
  Sender: FDA-Public Use
  Company Number: None

PATIENT
  Age: 47 Year
  Sex: Female
  Weight: 85.5 kg

DRUGS (4)
  1. CIMZIA [Suspect]
     Active Substance: CERTOLIZUMAB PEGOL
     Indication: ARTHRITIS
     Dates: start: 20161024, end: 20161107
  2. PREDNISONE. [Concomitant]
     Active Substance: PREDNISONE
  3. D [Concomitant]
  4. SULFASILAZINE [Concomitant]

REACTIONS (3)
  - Condition aggravated [None]
  - Stiff person syndrome [None]
  - Sjogren^s syndrome [None]

NARRATIVE: CASE EVENT DATE: 20161107
